FAERS Safety Report 25043902 (Version 1)
Quarter: 2025Q1

REPORT INFORMATION
  Report Type: Spontaneous
  Country: CN (occurrence: CN)
  Receive Date: 20250306
  Receipt Date: 20250306
  Transmission Date: 20250409
  Serious: Yes (Hospitalization)
  Sender: BEIGENE
  Company Number: CN-BEIGENE-BGN-2025-003114

PATIENT
  Age: 69 Year
  Weight: 76 kg

DRUGS (1)
  1. TISLELIZUMAB [Suspect]
     Active Substance: TISLELIZUMAB
     Indication: Lung carcinoma cell type unspecified recurrent

REACTIONS (3)
  - Drug eruption [Recovering/Resolving]
  - Pruritus [Unknown]
  - Underdose [Unknown]
